FAERS Safety Report 12382038 (Version 1)
Quarter: 2016Q2

REPORT INFORMATION
  Report Type: Spontaneous
  Country: US (occurrence: None)
  Receive Date: 20160517
  Receipt Date: 20160517
  Transmission Date: 20160815
  Serious: Yes (Hospitalization)
  Sender: FDA-Public Use
  Company Number: None

PATIENT
  Age: 49 Year
  Sex: Male
  Weight: 113.4 kg

DRUGS (6)
  1. INSULIN GLARGINE [Concomitant]
     Active Substance: INSULIN GLARGINE
  2. ATENOLOL. [Concomitant]
     Active Substance: ATENOLOL
  3. DIVALPROEX SODIUM ER TABS, 500 MG MYLAN INST . [Suspect]
     Active Substance: DIVALPROEX SODIUM
     Indication: AFFECTIVE DISORDER
     Route: 048
     Dates: start: 20160506, end: 20160510
  4. INSULIN LISPRO [Concomitant]
     Active Substance: INSULIN LISPRO
  5. BENZTROPINE [Concomitant]
     Active Substance: BENZTROPINE
  6. CLOZAPINE. [Concomitant]
     Active Substance: CLOZAPINE

REACTIONS (1)
  - Drug level decreased [None]

NARRATIVE: CASE EVENT DATE: 20160510
